FAERS Safety Report 13919462 (Version 7)
Quarter: 2022Q1

REPORT INFORMATION
  Report Type: Spontaneous
  Country: FR (occurrence: FR)
  Receive Date: 20170830
  Receipt Date: 20220219
  Transmission Date: 20220423
  Serious: Yes (Hospitalization, Other)
  Sender: FDA-Public Use
  Company Number: None

PATIENT
  Age: 60 Year
  Sex: Female

DRUGS (1)
  1. AMOXICILLIN [Suspect]
     Active Substance: AMOXICILLIN
     Indication: Erythema migrans
     Dosage: 3 GRAM, ONCE A DAY
     Route: 048

REACTIONS (6)
  - Drug eruption [Unknown]
  - Rash maculo-papular [Unknown]
  - Koebner phenomenon [Unknown]
  - Rash [Recovered/Resolved]
  - Erythema [Unknown]
  - Toxic skin eruption [Recovering/Resolving]
